FAERS Safety Report 17054812 (Version 1)
Quarter: 2019Q4

REPORT INFORMATION
  Report Type: Spontaneous
  Country: US (occurrence: US)
  Receive Date: 20191022
  Receipt Date: 20191022
  Transmission Date: 20200122
  Serious: Yes (Other)
  Sender: FDA-Public Use
  Company Number: None

PATIENT
  Age: 37 Year
  Sex: Female

DRUGS (2)
  1. ORILISSA [Suspect]
     Active Substance: ELAGOLIX SODIUM
  2. SPRAVATO [Suspect]
     Active Substance: ESKETAMINE
     Indication: ENDOMETRIOSIS
     Dosage: ?          OTHER DOSE:3 SPRAY;?
     Route: 045
     Dates: start: 20190822

REACTIONS (1)
  - Suicidal behaviour [None]

NARRATIVE: CASE EVENT DATE: 201910
